FAERS Safety Report 4379726-4 (Version None)
Quarter: 2004Q2

REPORT INFORMATION
  Report Type: 
  Country: None (occurrence: None)
  Receive Date: 20040614
  Receipt Date: 20040103
  Transmission Date: 20050107
  Serious: Yes (Hospitalization)
  Sender: FDA-Public Use
  Company Number: FR-JNJFOC-20040601442

PATIENT

DRUGS (1)
  1. REMICADE (INFLIXIMAB, RECOMBINANT) LYOPHILIZED POWDER [Suspect]
     Indication: ANKYLOSING SPONDYLITIS
     Dosage: INTRAVENOUS
     Route: 042
     Dates: start: 20031117

REACTIONS (1)
  - CARPAL TUNNEL DECOMPRESSION [None]
